FAERS Safety Report 9128566 (Version 1)
Quarter: 2013Q1

REPORT INFORMATION
  Report Type: Spontaneous
  Country: US (occurrence: US)
  Receive Date: 20130228
  Receipt Date: 20130228
  Transmission Date: 20140127
  Serious: No
  Sender: FDA-Public Use
  Company Number: US-ABBOTT-13P-163-1048088-00

PATIENT
  Sex: Male
  Weight: 74 kg

DRUGS (3)
  1. ANDROGEL [Suspect]
     Indication: BLOOD TESTOSTERONE DECREASED
     Dates: start: 201302
  2. UNKNOWN GLUCOSE MEDICATION (NON-ABBOTT) [Concomitant]
     Indication: DIABETES MELLITUS
  3. UNKNOWN HYPERTENSION MED (NON-ABBOTT) [Concomitant]
     Indication: HYPERTENSION

REACTIONS (1)
  - Erectile dysfunction [Not Recovered/Not Resolved]
